FAERS Safety Report 9697446 (Version 2)
Quarter: 2013Q4

REPORT INFORMATION
  Report Type: Spontaneous
  Country: US (occurrence: US)
  Receive Date: 20131120
  Receipt Date: 20131120
  Transmission Date: 20140711
  Serious: Yes (Other)
  Sender: FDA-Public Use
  Company Number: US-AMGEN-USASP2013070324

PATIENT
  Age: 65 Year
  Sex: Female
  Weight: 78.91 kg

DRUGS (4)
  1. NEULASTA [Suspect]
     Indication: PRODUCT USED FOR UNKNOWN INDICATION
     Dosage: 6 MG, AFTER EACH CHEMOTHERAPY TREATMENT
     Route: 058
     Dates: start: 20130920
  2. TAXOTERE [Concomitant]
     Indication: INVASIVE LOBULAR BREAST CARCINOMA
     Dosage: UNK UNK, ONCE IN 21 DAYS
     Route: 042
     Dates: start: 20130919
  3. CARBOPLATIN [Concomitant]
     Indication: INVASIVE LOBULAR BREAST CARCINOMA
     Dosage: UNK UNK, ONCE IN 21 DAYS
     Route: 042
     Dates: start: 20130919
  4. HERCEPTIN [Concomitant]
     Indication: INVASIVE LOBULAR BREAST CARCINOMA
     Dosage: UNK UNK, WEEKLY
     Route: 042
     Dates: start: 20130919

REACTIONS (4)
  - Bone pain [Recovered/Resolved]
  - Asthenia [Recovered/Resolved]
  - Pain [Recovered/Resolved]
  - Decreased appetite [Unknown]
